FAERS Safety Report 7730377-0 (Version None)
Quarter: 2011Q3

REPORT INFORMATION
  Report Type: 
  Country: None (occurrence: None)
  Receive Date: 20110906
  Receipt Date: 20110726
  Transmission Date: 20111222
  Serious: No
  Sender: FDA-Public Use
  Company Number: US-GLAXOSMITHKLINE-A0938371A

PATIENT
  Age: 52 Year
  Sex: Male

DRUGS (6)
  1. PANPROSIN [Concomitant]
  2. PHENYTOIN [Concomitant]
  3. RAPAFLO [Concomitant]
  4. LAMICTAL [Suspect]
     Indication: AFFECTIVE DISORDER
     Dosage: 100MG PER DAY
     Route: 048
     Dates: start: 20110603
  5. LIPITOR [Concomitant]
  6. ADDERALL 5 [Concomitant]

REACTIONS (1)
  - AGITATION [None]
